FAERS Safety Report 5078623-9 (Version None)
Quarter: 2006Q3

REPORT INFORMATION
  Report Type: 
  Country: None (occurrence: None)
  Receive Date: 20060808
  Receipt Date: 20060724
  Transmission Date: 20061208
  Serious: Yes (Hospitalization)
  Sender: FDA-Public Use
  Company Number: CA200607001383

PATIENT
  Age: 79 Year
  Sex: Female

DRUGS (21)
  1. FORTEO [Suspect]
     Indication: OSTEOPOROSIS
     Dosage: 20 UG, DAILY (1/D)
     Dates: start: 20050208, end: 20060703
  2. FORTEO [Concomitant]
  3. ACTONEL [Concomitant]
  4. ALTACE [Concomitant]
  5. APO-FUROSEMIDE (FUROSEMIDE) [Concomitant]
  6. BONAMINE (MECLOZINE HYDROCHLORIDE) [Concomitant]
  7. CALCIUM (CALCIUM) [Concomitant]
  8. COMBIVENT (IPRATROPIUM BROMIDE, SALBUTAMOL SULFATE) INHALER [Concomitant]
  9. DITROPAN XL [Concomitant]
  10. EZETROL (EZETIMIBE) [Concomitant]
  11. GEN-BECLO AQ (BECLOMETASONE DIPROPIONATE) [Concomitant]
  12. GLUCOSAMINE SULFATE         (GLUCOSAMINE SULFATE) [Concomitant]
  13. LOSEC (OMEPRAZOLE) [Concomitant]
  14. METAMUCIL (GLUCOSE MONOHYDRATE, ISPAGHULA HUSK) [Concomitant]
  15. NOTRO-SPRAY (ISOSORBIDE DINITRATE) [Concomitant]
  16. NORVASC [Concomitant]
  17. OCUVITE (ASCORBIC ACID, RETINOL, TOCOPHEROL) [Concomitant]
  18. PLAVIX [Concomitant]
  19. SLOW-K [Concomitant]
  20. SYMBICORT TURBUHALER ASTRAZENECA (BUDESONIDE, FORMOTEROL FUMARATE) [Concomitant]
  21. TYLENOL [Concomitant]

REACTIONS (20)
  - ARTHRALGIA [None]
  - ASTHENIA [None]
  - COLITIS ULCERATIVE [None]
  - CONSTIPATION [None]
  - DIZZINESS [None]
  - DYSARTHRIA [None]
  - DYSPNOEA [None]
  - FALL [None]
  - FRACTURE [None]
  - INJECTION SITE PAIN [None]
  - INJECTION SITE REACTION [None]
  - NAUSEA [None]
  - PAIN [None]
  - RECTAL HAEMORRHAGE [None]
  - RECTAL PROLAPSE [None]
  - SPEECH DISORDER [None]
  - STOMACH DISCOMFORT [None]
  - SWELLING FACE [None]
  - TRANSIENT ISCHAEMIC ATTACK [None]
  - VOMITING [None]
